FAERS Safety Report 4705489-6 (Version None)
Quarter: 2005Q2

REPORT INFORMATION
  Report Type: 
  Country: None (occurrence: None)
  Receive Date: 20050630
  Receipt Date: 20050630
  Transmission Date: 20051028
  Serious: Yes (Death, Life-Threatening)
  Sender: FDA-Public Use
  Company Number: None

PATIENT
  Age: 82 Year
  Sex: Male
  Weight: 68.9 kg

DRUGS (5)
  1. HEPARIN [Suspect]
     Dosage: 100U/ML, AT 12ML/, INTRAVEN , HALF NS 250ML
     Route: 042
     Dates: start: 20040622, end: 20040623
  2. NOVOLIN R [Concomitant]
  3. CLOPIDOGREL BISULFATE [Concomitant]
  4. ASPIRIN [Concomitant]
  5. PRILOSEC [Concomitant]

REACTIONS (2)
  - COAGULOPATHY [None]
  - GASTROINTESTINAL HAEMORRHAGE [None]
